FAERS Safety Report 5336849-0 (Version None)
Quarter: 2007Q2

REPORT INFORMATION
  Report Type: 
  Country: None (occurrence: None)
  Receive Date: 20070524
  Receipt Date: 20070524
  Transmission Date: 20071010
  Serious: Yes (Other)
  Sender: FDA-Public Use
  Company Number: None

PATIENT
  Sex: Male
  Weight: 69.8539 kg

DRUGS (2)
  1. CHANTIX [Suspect]
     Indication: NICOTINE DEPENDENCE
     Dosage: PO
     Route: 048
  2. CHANTIX [Suspect]
     Indication: NICOTINE DEPENDENCE
     Dosage: PO
     Route: 048

REACTIONS (4)
  - GAIT DISTURBANCE [None]
  - GRIP STRENGTH DECREASED [None]
  - PAIN IN EXTREMITY [None]
  - SKIN EXFOLIATION [None]
